FAERS Safety Report 23569962 (Version 1)
Quarter: 2024Q1

REPORT INFORMATION
  Report Type: Other
  Country: ID (occurrence: ID)
  Receive Date: 20240227
  Receipt Date: 20240227
  Transmission Date: 20240410
  Serious: Yes (Life-Threatening, Other)
  Sender: FDA-Public Use
  Company Number: ID-Appco Pharma LLC-2153720

PATIENT
  Age: 66 Year
  Sex: Male

DRUGS (5)
  1. CHLORPROMAZINE [Suspect]
     Active Substance: CHLORPROMAZINE
     Route: 065
  2. GLIQUIDONE [Concomitant]
     Active Substance: GLIQUIDONE
     Route: 048
  3. CANDESARTAN [Concomitant]
     Active Substance: CANDESARTAN
     Route: 048
  4. ACARBOSE [Concomitant]
     Active Substance: ACARBOSE
     Route: 048
  5. METFORMIN [Concomitant]
     Active Substance: METFORMIN HYDROCHLORIDE
     Route: 048

REACTIONS (1)
  - Hyponatraemia [Recovered/Resolved]
